FAERS Safety Report 9991275 (Version 1)
Quarter: 2014Q1

REPORT INFORMATION
  Report Type: Spontaneous
  Country: US (occurrence: None)
  Receive Date: 20140123
  Receipt Date: 20140123
  Transmission Date: 20141002
  Serious: Yes (Hospitalization)
  Sender: FDA-Public Use
  Company Number: UTC-040128

PATIENT
  Age: 72 Year
  Sex: Female
  Weight: 60.45 kg

DRUGS (2)
  1. REMODULIN (2.5 MILLIGRAM/MILLILITERS, INJECTION FOR INFUSION) (TREPROSTINIL SODIUM) [Suspect]
     Indication: COR PULMONALE CHRONIC
     Dosage: 55.44 UG/KG (0.0385 UG/KG, 1 IN 1 MIN), INTRAVENOUS DRIP
     Dates: start: 20101103
  2. VIAGRA (SILDENAFIL) [Concomitant]

REACTIONS (1)
  - Haemorrhage [None]
